FAERS Safety Report 8805533 (Version 2)
Quarter: 2012Q4

REPORT INFORMATION
  Report Type: Report from Study
  Country: BR (occurrence: BR)
  Receive Date: 20120924
  Receipt Date: 20121211
  Transmission Date: 20130627
  Serious: Yes (Death, Hospitalization)
  Sender: FDA-Public Use
  Company Number: BR-ROCHE-1132641

PATIENT
  Sex: Female
  Weight: 90 kg

DRUGS (1)
  1. TOCILIZUMAB [Suspect]
     Indication: RHEUMATOID ARTHRITIS
     Route: 065
     Dates: start: 20110224, end: 20120401

REACTIONS (3)
  - Pleural effusion [Unknown]
  - Autoimmune disorder [Fatal]
  - Lung neoplasm [Fatal]
